FAERS Safety Report 15455653 (Version 1)
Quarter: 2018Q4

REPORT INFORMATION
  Report Type: Spontaneous
  Country: US (occurrence: US)
  Receive Date: 20181002
  Receipt Date: 20181002
  Transmission Date: 20190204
  Serious: Yes (Other)
  Sender: FDA-Public Use
  Company Number: US-PFIZER INC-2018393262

PATIENT
  Age: 57 Year
  Sex: Female
  Weight: 71.2 kg

DRUGS (1)
  1. IBRANCE [Suspect]
     Active Substance: PALBOCICLIB
     Indication: BREAST CANCER METASTATIC
     Dosage: UNK
     Route: 048

REACTIONS (7)
  - Arthralgia [Unknown]
  - Nausea [Unknown]
  - Faecaloma [Unknown]
  - Fatigue [Unknown]
  - Neoplasm progression [Unknown]
  - Constipation [Not Recovered/Not Resolved]
  - Depression [Unknown]
